FAERS Safety Report 4377667-X (Version None)
Quarter: 2004Q2

REPORT INFORMATION
  Report Type: 
  Country: None (occurrence: None)
  Receive Date: 20040615
  Receipt Date: 20040517
  Transmission Date: 20050107
  Serious: Yes (Hospitalization)
  Sender: FDA-Public Use
  Company Number: US-ROCHE-368141

PATIENT
  Sex: Male

DRUGS (3)
  1. FUZEON [Suspect]
     Indication: DRUG USE FOR UNKNOWN INDICATION
     Route: 058
  2. NORVIR [Concomitant]
  3. UNKNOWN DRUG [Concomitant]
     Dosage: TIMPANOVIR.

REACTIONS (5)
  - ANAL DISCOMFORT [None]
  - ASTHENIA [None]
  - BRAIN NEOPLASM [None]
  - PYREXIA [None]
  - RASH [None]
